FAERS Safety Report 20699924 (Version 1)
Quarter: 2022Q2

REPORT INFORMATION
  Report Type: Spontaneous
  Country: US (occurrence: None)
  Receive Date: 20220409
  Receipt Date: 20220409
  Transmission Date: 20220721
  Serious: Yes (Life-Threatening, Disabling, Other)
  Sender: FDA-Public Use
  Company Number: None

PATIENT
  Age: 50 Year
  Sex: Male
  Weight: 134.1 kg

DRUGS (6)
  1. CYMBALTA [Suspect]
     Active Substance: DULOXETINE HYDROCHLORIDE
     Indication: Depression
     Dosage: OTHER QUANTITY : 1 CAPSULE(S);?
     Route: 048
     Dates: start: 20220409, end: 20220409
  2. CYMBALTA [Suspect]
     Active Substance: DULOXETINE HYDROCHLORIDE
     Indication: Pain
  3. LISINOPRIL [Concomitant]
     Active Substance: LISINOPRIL
  4. HCTZ 20mg [Concomitant]
  5. VITAMIN B COMPLEX [Concomitant]
     Active Substance: CYANOCOBALAMIN\DEXPANTHENOL\NIACINAMIDE\PYRIDOXINE HYDROCHLORIDE\RIBOFLAVIN 5^-PHOSPHATE SODIUM\THIA
  6. VITAMIN D [Concomitant]
     Active Substance: VITAMIN D NOS

REACTIONS (9)
  - Swelling face [None]
  - Swollen tongue [None]
  - Eye swelling [None]
  - Pharyngeal swelling [None]
  - Chest discomfort [None]
  - Blood pressure increased [None]
  - Dysphonia [None]
  - Swelling [None]
  - Drug hypersensitivity [None]

NARRATIVE: CASE EVENT DATE: 20220409
